FAERS Safety Report 9861990 (Version 1)
Quarter: 2014Q1

REPORT INFORMATION
  Report Type: Report from Study
  Country: CA (occurrence: CA)
  Receive Date: 20140203
  Receipt Date: 20140203
  Transmission Date: 20141002
  Serious: Yes (Other)
  Sender: FDA-Public Use
  Company Number: CA-ROCHE-1340359

PATIENT
  Age: 43 Year
  Sex: Male

DRUGS (3)
  1. PEGASYS [Suspect]
     Indication: CHRONIC HEPATITIS C
     Dosage: 0.5 ML PRE-FILLED SYRINGE
     Route: 058
     Dates: start: 20131007, end: 20131229
  2. COPEGUS [Suspect]
     Indication: CHRONIC HEPATITIS C
     Dosage: 42 TABLET/WEEK
     Route: 048
     Dates: start: 20131007, end: 20131229
  3. EPREX [Suspect]
     Indication: ANAEMIA
     Route: 065

REACTIONS (4)
  - Haemoglobin decreased [Recovered/Resolved]
  - Nasopharyngitis [Recovered/Resolved]
  - Photosensitivity reaction [Recovered/Resolved]
  - Cardiac disorder [Unknown]
